FAERS Safety Report 7504482-8 (Version None)
Quarter: 2011Q2

REPORT INFORMATION
  Report Type: 
  Country: None (occurrence: None)
  Receive Date: 20110525
  Receipt Date: 20110510
  Transmission Date: 20111010
  Serious: Yes (Hospitalization)
  Sender: FDA-Public Use
  Company Number: US-ASTRAZENECA-2011SE21351

PATIENT
  Age: 79 Year
  Sex: Male

DRUGS (11)
  1. NEXIUM [Suspect]
     Indication: GASTROOESOPHAGEAL REFLUX DISEASE
     Route: 048
  2. HYDROCHLOROTHIAZIDE [Concomitant]
     Indication: BLOOD PRESSURE
  3. SIMVASTATIN [Concomitant]
     Indication: HYPERCHOLESTEROLAEMIA
  4. IBUPROFEN [Concomitant]
     Indication: ARTHRITIS INFECTIVE
  5. GLIPIZIE [Concomitant]
     Indication: DIABETES MELLITUS
  6. MORPHINE [Concomitant]
     Indication: ARTHRALGIA
  7. TAMSULOSIN HCL [Concomitant]
     Indication: PROSTATOMEGALY
     Dosage: TWO TIMES A DAY
  8. VITAMINS [Concomitant]
     Dosage: ONE A DAY
  9. AMLODIPINE BESYLATE [Concomitant]
     Indication: BLOOD PRESSURE
  10. KLOR-GEN [Concomitant]
     Indication: MUSCLE SPASMS
  11. IBUPROFEN [Concomitant]
     Indication: ARTHRALGIA

REACTIONS (1)
  - KNEE ARTHROPLASTY [None]
